FAERS Safety Report 12300154 (Version 2)
Quarter: 2016Q2

REPORT INFORMATION
  Report Type: Spontaneous
  Country: GB (occurrence: GB)
  Receive Date: 20160425
  Receipt Date: 20160428
  Transmission Date: 20160815
  Serious: Yes (Hospitalization)
  Sender: FDA-Public Use
  Company Number: GB-SA-2016SA078530

PATIENT
  Age: 30 Year
  Sex: Male

DRUGS (1)
  1. CHLOROQUINE. [Suspect]
     Active Substance: CHLOROQUINE
     Indication: PARASITIC INFECTION PROPHYLAXIS
     Route: 048

REACTIONS (11)
  - Movement disorder [Recovered/Resolved]
  - Generalised tonic-clonic seizure [Recovered/Resolved]
  - Loss of consciousness [Recovered/Resolved]
  - Joint swelling [Recovered/Resolved]
  - Musculoskeletal pain [Recovering/Resolving]
  - Humerus fracture [Recovered/Resolved]
  - Comminuted fracture [Recovered/Resolved]
  - Intentional product misuse [Unknown]
  - Tremor [Recovered/Resolved]
  - Joint dislocation [Recovering/Resolving]
  - Pain [Recovering/Resolving]
